FAERS Safety Report 22176746 (Version 1)
Quarter: 2023Q2

REPORT INFORMATION
  Report Type: Spontaneous
  Country: US (occurrence: None)
  Receive Date: 20230404
  Receipt Date: 20230404
  Transmission Date: 20230722
  Serious: No
  Sender: FDA-Public Use
  Company Number: None

PATIENT
  Age: 72 Year
  Sex: Male

DRUGS (1)
  1. SILDENAFIL [Suspect]
     Active Substance: SILDENAFIL
     Dosage: 100 MG DAILY ORAL
     Route: 048

REACTIONS (5)
  - Vision blurred [None]
  - Dizziness [None]
  - Dizziness [None]
  - Illness [None]
  - Therapy interrupted [None]
